FAERS Safety Report 5857216-7 (Version None)
Quarter: 2008Q3

REPORT INFORMATION
  Report Type: 
  Country: None (occurrence: None)
  Receive Date: 20080821
  Receipt Date: 20080805
  Transmission Date: 20090109
  Serious: Yes (Hospitalization)
  Sender: FDA-Public Use
  Company Number: 2008S1013804

PATIENT
  Age: 33 Year
  Sex: Male

DRUGS (14)
  1. SIMULECT [Suspect]
     Indication: PROPHYLAXIS AGAINST TRANSPLANT REJECTION
  2. TACROLIMUS [Suspect]
     Indication: PROPHYLAXIS AGAINST TRANSPLANT REJECTION
  3. MYCOPHENOLATE MOFETIL [Suspect]
     Indication: PROPHYLAXIS AGAINST TRANSPLANT REJECTION
  4. PREDNISONE TAB [Suspect]
     Indication: PROPHYLAXIS AGAINST TRANSPLANT REJECTION
     Dosage: 10 MG; DAILY
  5. CEFTAZIDIME [Suspect]
  6. FLUCONAZOLE [Suspect]
  7. METRONIDAZOLE [Suspect]
  8. MEROPENEM (MEROPENEM) [Suspect]
  9. VANCOMYCIN [Suspect]
  10. CASPOFUNGIN (CASPOFUNGIN) [Suspect]
  11. BACTRIM [Suspect]
  12. CIPROFLOXACIN [Suspect]
  13. LANSOPRAZOLE [Concomitant]
  14. FILGRASTIM (FILGRASTIM) [Concomitant]

REACTIONS (5)
  - BACTERIAL INFECTION [None]
  - ILEAL PERFORATION [None]
  - KIDNEY TRANSPLANT REJECTION [None]
  - PLEURAL EFFUSION [None]
  - SEPSIS [None]
